FAERS Safety Report 14601066 (Version 4)
Quarter: 2018Q4

REPORT INFORMATION
  Report Type: Report from Study
  Country: US (occurrence: US)
  Receive Date: 20180305
  Receipt Date: 20181113
  Transmission Date: 20190204
  Serious: Yes (Hospitalization)
  Sender: FDA-Public Use
  Company Number: US-ACTELION-A-US2017-160058

PATIENT
  Age: 2 Year
  Sex: Female
  Weight: 11.34 kg

DRUGS (8)
  1. REVATIO [Concomitant]
     Active Substance: SILDENAFIL CITRATE
     Dosage: 10 MG, TID
     Dates: start: 2016
  2. TRACLEER [Suspect]
     Active Substance: BOSENTAN
     Dosage: 31.25 MG, BID
     Route: 048
     Dates: start: 2016
  3. REMODULIN [Concomitant]
     Active Substance: TREPROSTINIL
     Dosage: 30 NG/KG, UNK
     Dates: end: 2018
  4. TRACLEER [Suspect]
     Active Substance: BOSENTAN
     Dosage: 22.5 MG, BID
     Route: 048
  5. TRACLEER [Suspect]
     Active Substance: BOSENTAN
     Indication: PULMONARY HYPERTENSION
     Dosage: 62.5 MG, BID
     Route: 048
  6. TRACLEER [Suspect]
     Active Substance: BOSENTAN
     Dosage: 18.75 MG, BID
     Route: 048
  7. REMODULIN [Concomitant]
     Active Substance: TREPROSTINIL
     Dosage: 40 NG/KG, PER MIN
  8. REVATIO [Concomitant]
     Active Substance: SILDENAFIL CITRATE
     Dosage: 16 UNK, UNK
     Route: 048

REACTIONS (8)
  - Hospitalisation [Recovered/Resolved]
  - Condition aggravated [Unknown]
  - Oxygen saturation decreased [Unknown]
  - Rhinovirus infection [Unknown]
  - Respiratory distress [Unknown]
  - Oxygen consumption increased [Unknown]
  - Parainfluenzae virus infection [Unknown]
  - Enterovirus infection [Unknown]
